FAERS Safety Report 20188787 (Version 1)
Quarter: 2021Q4

REPORT INFORMATION
  Report Type: Spontaneous
  Country: CA (occurrence: CA)
  Receive Date: 20211215
  Receipt Date: 20211215
  Transmission Date: 20220303
  Serious: Yes (Hospitalization)
  Sender: FDA-Public Use
  Company Number: CA-TEVA-2021-CA-1986529

PATIENT
  Age: 9 Year
  Sex: Male
  Weight: 25 kg

DRUGS (8)
  1. VINCRISTINE SULFATE [Suspect]
     Active Substance: VINCRISTINE SULFATE
     Indication: Ewing^s sarcoma
     Route: 042
  2. CYCLOPHOSPHAMIDE [Suspect]
     Active Substance: CYCLOPHOSPHAMIDE
     Indication: Ewing^s sarcoma
     Route: 042
  3. MESNA [Concomitant]
     Active Substance: MESNA
  4. NEUPOGEN [Concomitant]
     Active Substance: FILGRASTIM
  5. ONDANSETRON [Concomitant]
     Active Substance: ONDANSETRON
  6. POLYETHYLENE GLYCOL [Concomitant]
     Active Substance: POLYETHYLENE GLYCOL
  7. PREGABALIN [Concomitant]
     Active Substance: PREGABALIN
  8. SULFAMETHOXAZOLE\TRIMETHOPRIM [Concomitant]
     Active Substance: SULFAMETHOXAZOLE\TRIMETHOPRIM

REACTIONS (2)
  - Neutrophil count increased [Recovered/Resolved]
  - Pyrexia [Recovered/Resolved]
